FAERS Safety Report 18780906 (Version 1)
Quarter: 2021Q1

REPORT INFORMATION
  Report Type: Spontaneous
  Country: US (occurrence: US)
  Receive Date: 20210123
  Receipt Date: 20210123
  Transmission Date: 20210419
  Serious: Yes (Hospitalization)
  Sender: FDA-Public Use
  Company Number: None

PATIENT
  Sex: Male

DRUGS (3)
  1. TEMOZOLOMIDE. [Suspect]
     Active Substance: TEMOZOLOMIDE
     Indication: BRAIN NEOPLASM
     Dosage: ?          OTHER FREQUENCY:QD X 5 DAYS OF 28;?
     Route: 048
     Dates: start: 20201001
  2. NONE [Concomitant]
     Active Substance: UNSPECIFIED INGREDIENT
  3. TEMOZOLOMIDE. [Suspect]
     Active Substance: TEMOZOLOMIDE
     Indication: BRAIN NEOPLASM
     Dosage: ?          OTHER FREQUENCY:QD X 5 DAYS OF 28;?
     Route: 048
     Dates: start: 20201001

REACTIONS (2)
  - Seizure [None]
  - Gastric disorder [None]
